FAERS Safety Report 4332433-6 (Version None)
Quarter: 2004Q1

REPORT INFORMATION
  Report Type: 
  Country: None (occurrence: None)
  Receive Date: 20040329
  Receipt Date: 20031209
  Transmission Date: 20041129
  Serious: No
  Sender: FDA-Public Use
  Company Number: 03P-163-0242242-00

PATIENT
  Sex: Female
  Weight: 54.4316 kg

DRUGS (5)
  1. HUMIRA [Suspect]
     Indication: RHEUMATOID ARTHRITIS
     Dosage: 40 MG, 1 IN 2 WK, SUBCUTANEOUS
     Route: 058
     Dates: start: 20030903, end: 20031105
  2. ROFECOXIB [Concomitant]
  3. HYDROCHLOROTHIAZIDE [Concomitant]
  4. DARVOCET [Concomitant]
  5. FLU SHOT [Concomitant]

REACTIONS (4)
  - ASTHENIA [None]
  - INSOMNIA [None]
  - RASH GENERALISED [None]
  - RASH PUSTULAR [None]
